FAERS Safety Report 12457131 (Version 3)
Quarter: 2016Q3

REPORT INFORMATION
  Report Type: Spontaneous
  Country: JP (occurrence: JP)
  Receive Date: 20160610
  Receipt Date: 20160705
  Transmission Date: 20161109
  Serious: Yes (Other)
  Sender: FDA-Public Use
  Company Number: PHJP2016JP015469

PATIENT
  Age: 54 Year
  Sex: Female

DRUGS (1)
  1. DIOVAN [Suspect]
     Active Substance: VALSARTAN
     Indication: HYPERTENSION
     Dosage: 80 MG, QD
     Route: 048

REACTIONS (1)
  - Conjunctival haemorrhage [Recovered/Resolved]

NARRATIVE: CASE EVENT DATE: 201604
